FAERS Safety Report 14072581 (Version 3)
Quarter: 2018Q3

REPORT INFORMATION
  Report Type: Report from Study
  Country: US (occurrence: US)
  Receive Date: 20171010
  Receipt Date: 20180702
  Transmission Date: 20181010
  Serious: No
  Sender: FDA-Public Use
  Company Number: US-SA-2017SA170864

PATIENT
  Age: 71 Year
  Sex: Female

DRUGS (6)
  1. DUPILUMAB [Suspect]
     Active Substance: DUPILUMAB
     Dosage: 600 MG,1X
     Route: 058
     Dates: start: 20170808, end: 20170808
  2. DUPILUMAB [Suspect]
     Active Substance: DUPILUMAB
     Dosage: UNK UNK,UNK
     Route: 058
     Dates: start: 201710
  3. DUPILUMAB [Suspect]
     Active Substance: DUPILUMAB
     Dosage: 300 MG, QOW
     Route: 058
  4. DUPILUMAB [Suspect]
     Active Substance: DUPILUMAB
     Dosage: UNK
  5. DUPILUMAB [Suspect]
     Active Substance: DUPILUMAB
     Indication: DERMATITIS ATOPIC
     Dosage: 600 MG,1X
     Route: 058
     Dates: start: 20170808, end: 20170808
  6. DUPILUMAB [Suspect]
     Active Substance: DUPILUMAB
     Dosage: 300 MG,QOW
     Route: 058
     Dates: start: 201708, end: 201709

REACTIONS (28)
  - Pruritus [Not Recovered/Not Resolved]
  - Drug dose omission [Unknown]
  - Rash [Unknown]
  - Erythema [Not Recovered/Not Resolved]
  - Joint swelling [Unknown]
  - Skin wrinkling [Recovering/Resolving]
  - Ear infection [Not Recovered/Not Resolved]
  - Anal incontinence [Recovered/Resolved]
  - Pain in extremity [Recovered/Resolved]
  - Rash [Unknown]
  - Diarrhoea [Unknown]
  - Underdose [Unknown]
  - Pruritus [Recovered/Resolved]
  - Alopecia [Unknown]
  - Depression [Not Recovered/Not Resolved]
  - Pruritus [Unknown]
  - Product use issue [Unknown]
  - Drug ineffective [Unknown]
  - Urinary incontinence [Recovered/Resolved]
  - Vomiting [Not Recovered/Not Resolved]
  - Arthralgia [Recovered/Resolved]
  - Urinary incontinence [Unknown]
  - Paranoia [Not Recovered/Not Resolved]
  - Rash generalised [Not Recovered/Not Resolved]
  - Arthritis [Recovered/Resolved]
  - Pollakiuria [Recovered/Resolved]
  - Peripheral swelling [Recovering/Resolving]
  - Nausea [Recovered/Resolved]

NARRATIVE: CASE EVENT DATE: 2017
